FAERS Safety Report 23765193 (Version 3)
Quarter: 2024Q3

REPORT INFORMATION
  Report Type: Report from Study
  Country: JP (occurrence: JP)
  Receive Date: 20240420
  Receipt Date: 20240730
  Transmission Date: 20241017
  Serious: Yes (Death)
  Sender: ABBVIE
  Company Number: JP-ABBVIE-5726465

PATIENT
  Age: 81 Year
  Sex: Female
  Weight: 43 kg

DRUGS (17)
  1. RINVOQ [Suspect]
     Active Substance: UPADACITINIB
     Indication: Rheumatoid arthritis
     Dosage: 15 MILLIGRAM
     Route: 048
     Dates: start: 20210515, end: 20230210
  2. ATORVASTATIN\EZETIMIBE [Concomitant]
     Active Substance: ATORVASTATIN\EZETIMIBE
     Indication: Product used for unknown indication
     Dosage: 1 TABLET
     Route: 048
  3. MEROPENEM [Concomitant]
     Active Substance: MEROPENEM
     Indication: Interstitial lung disease
     Dosage: 0.5 GRAM
     Dates: start: 20231010, end: 20231014
  4. ALENDRONATE [Concomitant]
     Active Substance: ALENDRONATE SODIUM
     Indication: Product used for unknown indication
     Dosage: 1 TABLET
     Route: 048
  5. SULFAMETHOXAZOLE AND TRIMETHOPRIM [Concomitant]
     Active Substance: SULFAMETHOXAZOLE\TRIMETHOPRIM
     Indication: Antifungal prophylaxis
     Dosage: 1 TABLET
     Route: 048
     Dates: start: 20201119, end: 20230818
  6. SULFAMETHOXAZOLE AND TRIMETHOPRIM [Concomitant]
     Active Substance: SULFAMETHOXAZOLE\TRIMETHOPRIM
     Indication: Antifungal prophylaxis
     Dosage: 1 TABLET
     Route: 048
  7. RINDERON [Concomitant]
     Indication: Rheumatoid arthritis
     Dosage: 0.8 MILLIGRAM
     Route: 048
     Dates: start: 20210402, end: 20210604
  8. RINDERON [Concomitant]
     Indication: Rheumatoid arthritis
     Dosage: 0.4 MILLIGRAM
     Route: 048
     Dates: start: 20210810, end: 20211104
  9. RINDERON [Concomitant]
     Indication: Rheumatoid arthritis
     Dosage: 0.6 MILLIGRAM
     Dates: start: 20210616, end: 20210810
  10. RINDERON [Concomitant]
     Indication: Rheumatoid arthritis
     Dosage: 0.7 MILLIGRAM
     Route: 048
     Dates: start: 20210605, end: 20210614
  11. RINDERON [Concomitant]
     Indication: Rheumatoid arthritis
     Dosage: 0.7 MILLIGRAM
     Dates: start: 20210605, end: 20210615
  12. RINDERON [Concomitant]
     Indication: Rheumatoid arthritis
     Dosage: 0.4 MILLIGRAM
     Dates: start: 20210811
  13. RINDERON [Concomitant]
     Indication: Rheumatoid arthritis
     Dosage: 0.9 MILLIGRAM
     Route: 048
     Dates: start: 20210305, end: 20210401
  14. RINDERON [Concomitant]
     Indication: Rheumatoid arthritis
     Dosage: 0.25 MILLIGRAM
     Route: 048
     Dates: start: 20220107
  15. RINDERON [Concomitant]
     Indication: Rheumatoid arthritis
     Dosage: 0.2 MILLIGRAM
     Route: 048
     Dates: start: 20211105, end: 20220106
  16. RINDERON [Concomitant]
     Indication: Rheumatoid arthritis
     Dosage: 1.0 MILLIGRAM
     Route: 048
     Dates: start: 20210205, end: 20210304
  17. METHYLPREDNISOLONE [Concomitant]
     Active Substance: METHYLPREDNISOLONE
     Indication: Interstitial lung disease
     Dosage: 40 MILLIGRAM
     Dates: start: 20231011, end: 20231014

REACTIONS (2)
  - Interstitial lung disease [Fatal]
  - Aspergillus infection [Unknown]

NARRATIVE: CASE EVENT DATE: 20231008
